FAERS Safety Report 19187001 (Version 1)
Quarter: 2021Q2

REPORT INFORMATION
  Report Type: Spontaneous
  Country: US (occurrence: US)
  Receive Date: 20210428
  Receipt Date: 20210428
  Transmission Date: 20210717
  Serious: No
  Sender: FDA-Public Use
  Company Number: US-SA-2021SA139250

PATIENT
  Sex: Male
  Weight: 72.57 kg

DRUGS (3)
  1. THYROGEN [Suspect]
     Active Substance: THYROTROPIN ALFA
     Dosage: 0.9 MG, QD, 24 HRS LATER
     Route: 030
  2. THYROGEN [Suspect]
     Active Substance: THYROTROPIN ALFA
     Indication: THYROID CANCER
     Dosage: 0.9 MG, QD
     Route: 030
  3. LENVIMA [Suspect]
     Active Substance: LENVATINIB

REACTIONS (1)
  - Drug ineffective [Unknown]
